FAERS Safety Report 7051655-7 (Version None)
Quarter: 2010Q4

REPORT INFORMATION
  Report Type: 
  Country: None (occurrence: None)
  Receive Date: 20101018
  Receipt Date: 20101018
  Transmission Date: 20110411
  Serious: Yes (Other)
  Sender: FDA-Public Use
  Company Number: None

PATIENT
  Age: 50 Year
  Sex: Female
  Weight: 72.5755 kg

DRUGS (1)
  1. OXYCODONE 20/OP 20MG SA TAB PURDUE [Suspect]
     Indication: BACK INJURY
     Dosage: 1 TAB EVERY 12HRS PO
     Route: 048
     Dates: start: 20011001, end: 20101013

REACTIONS (7)
  - ABDOMINAL PAIN UPPER [None]
  - HEADACHE [None]
  - IMPAIRED DRIVING ABILITY [None]
  - INADEQUATE ANALGESIA [None]
  - PRODUCT FORMULATION ISSUE [None]
  - RASH [None]
  - SOMNOLENCE [None]
